FAERS Safety Report 6631543-8 (Version None)
Quarter: 2010Q1

REPORT INFORMATION
  Report Type: 
  Country: None (occurrence: None)
  Receive Date: 20100312
  Receipt Date: 20100303
  Transmission Date: 20100710
  Serious: Yes (Other)
  Sender: FDA-Public Use
  Company Number: PHHY2010GB13258

PATIENT

DRUGS (1)
  1. EXJADE [Suspect]
     Route: 048

REACTIONS (2)
  - DIABETES MELLITUS [None]
  - RENAL DISORDER [None]
